FAERS Safety Report 8043771-8 (Version None)
Quarter: 2012Q1

REPORT INFORMATION
  Report Type: 
  Country: None (occurrence: None)
  Receive Date: 20120113
  Receipt Date: 20120106
  Transmission Date: 20120608
  Serious: No
  Sender: FDA-Public Use
  Company Number: US-BIOGENIDEC-2011BI036933

PATIENT
  Sex: Female

DRUGS (1)
  1. TYSABRI [Suspect]
     Indication: MULTIPLE SCLEROSIS
     Route: 042
     Dates: start: 20110329

REACTIONS (7)
  - IRRITABILITY [None]
  - ASTHENIA [None]
  - STRESS [None]
  - ROAD TRAFFIC ACCIDENT [None]
  - CRYING [None]
  - MALAISE [None]
  - HYPOAESTHESIA [None]
